FAERS Safety Report 8041737-5 (Version None)
Quarter: 2012Q1

REPORT INFORMATION
  Report Type: 
  Country: None (occurrence: None)
  Receive Date: 20120112
  Receipt Date: 20120106
  Transmission Date: 20120608
  Serious: Yes (Hospitalization)
  Sender: FDA-Public Use
  Company Number: AU-JNJFOC-20111102590

PATIENT
  Sex: Male
  Weight: 82.2 kg

DRUGS (11)
  1. CEFTRIAXONE [Concomitant]
     Indication: BACK PAIN
     Route: 065
     Dates: start: 20111102, end: 20111103
  2. METOCLOPRAMIDE [Concomitant]
     Indication: VOMITING
     Route: 065
     Dates: start: 20111209, end: 20111212
  3. ABIRATERONE ACETATE [Suspect]
     Route: 048
     Dates: start: 20111017, end: 20111113
  4. COLOXYL AND SENNA [Concomitant]
     Indication: CONSTIPATION
     Route: 065
     Dates: start: 20111209, end: 20111212
  5. GLYCERINE [Concomitant]
     Indication: CONSTIPATION
     Route: 065
     Dates: start: 20111210, end: 20111210
  6. ABIRATERONE ACETATE [Suspect]
     Route: 048
     Dates: start: 20111121
  7. PREDNISOLONE [Suspect]
     Indication: PROSTATE CANCER METASTATIC
     Route: 065
     Dates: start: 20111017
  8. ONDANSETRON [Concomitant]
     Indication: VOMITING
     Route: 065
     Dates: start: 20111209, end: 20111209
  9. ABIRATERONE ACETATE [Suspect]
     Indication: PROSTATE CANCER METASTATIC
     Route: 048
  10. ACETAMINOPHEN [Concomitant]
     Indication: BACK PAIN
     Route: 065
     Dates: start: 20111102, end: 20111103
  11. AMPICILLIN [Concomitant]
     Indication: BACK PAIN
     Route: 065
     Dates: start: 20111102, end: 20111103

REACTIONS (3)
  - VOMITING [None]
  - HYPERKALAEMIA [None]
  - BACK PAIN [None]
